FAERS Safety Report 5589432-6 (Version None)
Quarter: 2008Q1

REPORT INFORMATION
  Report Type: 
  Country: None (occurrence: None)
  Receive Date: 20080109
  Receipt Date: 20080109
  Transmission Date: 20080703
  Serious: Yes (Other)
  Sender: FDA-Public Use
  Company Number: None

PATIENT
  Age: 18 Month
  Sex: Female
  Weight: 11.7935 kg

DRUGS (1)
  1. PULMICORT RESPULES [Suspect]
     Indication: ASTHMA
     Dosage: 0.5MG/2ML 2 TIMES A DAY INHAL
     Route: 055

REACTIONS (7)
  - CRYING [None]
  - DERMATITIS DIAPER [None]
  - HUNGER [None]
  - INSOMNIA [None]
  - MOOD ALTERED [None]
  - SLEEP TERROR [None]
  - THIRST [None]
